FAERS Safety Report 5067801-0 (Version None)
Quarter: 2006Q3

REPORT INFORMATION
  Report Type: 
  Country: None (occurrence: None)
  Receive Date: 20060802
  Receipt Date: 20060725
  Transmission Date: 20061208
  Serious: Yes (Other)
  Sender: FDA-Public Use
  Company Number: GB-GLAXOSMITHKLINE-B0432541A

PATIENT
  Age: 35 Year
  Sex: Female

DRUGS (2)
  1. ZIDOVUDINE [Suspect]
     Indication: RETROVIRAL INFECTION
     Route: 065
     Dates: end: 20060306
  2. KALETRA [Suspect]
     Indication: RETROVIRAL INFECTION
     Route: 065
     Dates: end: 20060306

REACTIONS (2)
  - DRUG EXPOSURE DURING PREGNANCY [None]
  - STILLBIRTH [None]
